FAERS Safety Report 9470032 (Version 2)
Quarter: 2014Q1

REPORT INFORMATION
  Report Type: Spontaneous
  Country: US (occurrence: US)
  Receive Date: 20130822
  Receipt Date: 20140306
  Transmission Date: 20141002
  Serious: Yes (Other)
  Sender: FDA-Public Use
  Company Number: US-BAYER-2013-100890

PATIENT
  Age: 32 Year
  Sex: Female

DRUGS (1)
  1. MIRENA [Suspect]
     Indication: CONTRACEPTION
     Dosage: 20 MCG/24HR, CONT
     Route: 015
     Dates: start: 20101220, end: 20130723

REACTIONS (10)
  - Abdominal pain [Recovered/Resolved]
  - Depression [Recovered/Resolved]
  - Anxiety [Recovered/Resolved]
  - Mood swings [Recovered/Resolved]
  - Libido decreased [Recovered/Resolved]
  - Acne [Recovered/Resolved]
  - Bedridden [Recovered/Resolved]
  - Crying [Recovered/Resolved]
  - Procedural pain [Recovered/Resolved]
  - Embedded device [None]
